FAERS Safety Report 8885268 (Version 1)
Quarter: 2012Q4

REPORT INFORMATION
  Report Type: Report from Study
  Country: BR (occurrence: BR)
  Receive Date: 20121101
  Receipt Date: 20121101
  Transmission Date: 20130627
  Serious: Yes (Other)
  Sender: FDA-Public Use
  Company Number: BR-ROCHE-1150811

PATIENT
  Age: 73 Year
  Sex: Male
  Weight: 71 kg

DRUGS (5)
  1. BEVACIZUMAB [Suspect]
     Indication: COLON CANCER
     Route: 065
     Dates: start: 20120903, end: 20121029
  2. IRINOTECAN [Suspect]
     Indication: COLON CANCER
     Route: 065
     Dates: start: 20120903, end: 20121029
  3. OXALIPLATIN [Suspect]
     Indication: COLON CANCER
     Route: 065
     Dates: start: 20111219, end: 20120709
  4. FLUOROURACIL [Suspect]
     Indication: COLON CANCER
     Route: 065
     Dates: start: 20111219, end: 20120709
  5. LEUCOVORIN CALCIUM [Suspect]
     Indication: COLON CANCER
     Route: 065
     Dates: start: 20111219, end: 20120709

REACTIONS (3)
  - Disease progression [Unknown]
  - Gastric cancer stage IV [None]
  - Malignant neoplasm progression [None]
